FAERS Safety Report 10611071 (Version 2)
Quarter: 2015Q2

REPORT INFORMATION
  Report Type: Spontaneous
  Country: SE (occurrence: SE)
  Receive Date: 20141126
  Receipt Date: 20150416
  Transmission Date: 20150821
  Serious: Yes (Life-Threatening, Other)
  Sender: FDA-Public Use
  Company Number: SE-MERCK-1411SWE011641

PATIENT
  Age: 48 Year
  Sex: Male

DRUGS (4)
  1. INNOHEP [Suspect]
     Active Substance: TINZAPARIN SODIUM
  2. WARAN [Suspect]
     Active Substance: WARFARIN SODIUM
     Route: 048
  3. TROMBYL [Suspect]
     Active Substance: ASPIRIN
     Route: 048
  4. SIMVASTATIN. [Suspect]
     Active Substance: SIMVASTATIN
     Route: 048

REACTIONS (2)
  - Suicide attempt [Recovered/Resolved]
  - Poisoning [Recovered/Resolved]
